FAERS Safety Report 11809093 (Version 4)
Quarter: 2016Q1

REPORT INFORMATION
  Report Type: Spontaneous
  Country: IL (occurrence: IL)
  Receive Date: 20151207
  Receipt Date: 20160303
  Transmission Date: 20160525
  Serious: Yes (Death, Life-Threatening, Hospitalization, Other)
  Sender: FDA-Public Use
  Company Number: IL-GILEAD-2015-0185195

PATIENT
  Age: 70 Year
  Sex: Female

DRUGS (3)
  1. DAKLINZA [Concomitant]
     Active Substance: DACLATASVIR
     Indication: HEPATITIS C
     Dosage: 60 MG, UNK
     Dates: start: 201511, end: 201511
  2. RIBAVIRIN. [Concomitant]
     Active Substance: RIBAVIRIN
     Indication: HEPATITIS C
     Dosage: 1000 MG, UNK
     Dates: start: 201511, end: 201511
  3. SOVALDI [Suspect]
     Active Substance: SOFOSBUVIR
     Indication: HEPATITIS C
     Dosage: 400 MG, UNK
     Route: 065
     Dates: start: 20151108, end: 20151115

REACTIONS (6)
  - Leukopenia [Unknown]
  - Sepsis [Unknown]
  - Multiple organ dysfunction syndrome [Fatal]
  - Colitis [Unknown]
  - Metabolic acidosis [Unknown]
  - Coma [Fatal]

NARRATIVE: CASE EVENT DATE: 201511
